FAERS Safety Report 8138479-4 (Version None)
Quarter: 2012Q1

REPORT INFORMATION
  Report Type: 
  Country: None (occurrence: None)
  Receive Date: 20120215
  Receipt Date: 20120209
  Transmission Date: 20120608
  Serious: Yes (Other)
  Sender: FDA-Public Use
  Company Number: US-PFIZER INC-2012031884

PATIENT
  Sex: Female
  Weight: 56 kg

DRUGS (6)
  1. LYRICA [Suspect]
     Indication: ARTHRITIS
     Dosage: 50 MG, 3X/DAY
     Route: 048
     Dates: end: 20120206
  2. OMEPRAZOLE [Concomitant]
     Dosage: UNK
  3. ACETAMINOPHEN [Concomitant]
     Indication: FIBROMYALGIA
     Dosage: UNK
  4. FLONASE [Concomitant]
     Dosage: UNK
  5. CITALOPRAM [Concomitant]
     Dosage: UNK
  6. LEVOXYL [Concomitant]
     Dosage: UNK

REACTIONS (4)
  - DYSPNOEA [None]
  - HYPOACUSIS [None]
  - ARTHRITIS [None]
  - OEDEMA PERIPHERAL [None]
